FAERS Safety Report 9397381 (Version 2)
Quarter: 2013Q3

REPORT INFORMATION
  Report Type: Spontaneous
  Country: JP (occurrence: JP)
  Receive Date: 20130712
  Receipt Date: 20130725
  Transmission Date: 20140515
  Serious: Yes (Hospitalization, Other)
  Sender: FDA-Public Use
  Company Number: PHHY2013JP067250

PATIENT
  Age: 57 Year
  Sex: Female
  Weight: 56 kg

DRUGS (11)
  1. CICLOSPORIN [Suspect]
     Indication: STILL^S DISEASE ADULT ONSET
     Dosage: 150 MG, DAILY
  2. CICLOSPORIN [Interacting]
     Indication: OFF LABEL USE
     Dosage: 120 MG, DAILY
     Route: 048
  3. CICLOSPORIN [Interacting]
     Dosage: 80 MG, DAILY
     Route: 048
  4. CICLOSPORIN [Interacting]
     Dosage: 140 MG, DAILY
     Route: 048
  5. CICLOSPORIN [Interacting]
     Dosage: 100 MG, DAILY
     Route: 048
  6. PREDNISOLONE [Suspect]
     Indication: STILL^S DISEASE ADULT ONSET
     Dosage: 60 MG, UNK
     Route: 048
  7. PREDNISOLONE [Suspect]
     Dosage: 18 MG, UNK
     Route: 048
  8. PREDNISOLONE [Suspect]
     Dosage: 20 MG, UNK
     Route: 048
  9. PREDNISOLONE [Suspect]
     Dosage: 18 MG, UNK
     Route: 048
  10. AMPHOTERICIN B, LIPOSOME [Interacting]
     Indication: ASPERGILLUS INFECTION
     Dosage: 2.73 MG/KG, PER DAY (150MG)
     Route: 042
  11. CYCLOPHOSPHAMIDE [Concomitant]
     Indication: STILL^S DISEASE ADULT ONSET
     Dosage: 800 MG, UNK
     Route: 042

REACTIONS (12)
  - Renal failure acute [Recovered/Resolved]
  - Pyrexia [Unknown]
  - Renal impairment [Not Recovered/Not Resolved]
  - Renal failure chronic [Unknown]
  - Aspergillus infection [Recovered/Resolved]
  - Still^s disease adult onset [Recovered/Resolved]
  - Oropharyngeal pain [Recovered/Resolved]
  - Erythema [Recovered/Resolved]
  - Condition aggravated [Recovered/Resolved]
  - Therapeutic response decreased [Unknown]
  - Immunosuppressant drug level decreased [Recovered/Resolved]
  - Immunosuppressant drug level increased [Recovered/Resolved]
